FAERS Safety Report 8118396-6 (Version None)
Quarter: 2012Q1

REPORT INFORMATION
  Report Type: 
  Country: None (occurrence: None)
  Receive Date: 20120207
  Receipt Date: 20120131
  Transmission Date: 20120608
  Serious: Yes (Hospitalization)
  Sender: FDA-Public Use
  Company Number: CA-GENZYME-THYR-1000613

PATIENT
  Sex: Female

DRUGS (1)
  1. THYROGEN [Suspect]
     Indication: PRODUCT USED FOR UNKNOWN INDICATION
     Dosage: 0.9 MG, QD
     Route: 030
     Dates: start: 20120121, end: 20120121

REACTIONS (1)
  - DEHYDRATION [None]
